FAERS Safety Report 5105580-9 (Version None)
Quarter: 2006Q3

REPORT INFORMATION
  Report Type: 
  Country: None (occurrence: None)
  Receive Date: 20060915
  Receipt Date: 20060905
  Transmission Date: 20061208
  Serious: Yes (Death, Hospitalization)
  Sender: FDA-Public Use
  Company Number: FR-JNJFOC-20060901178

PATIENT
  Age: 85 Year
  Sex: Male
  Weight: 72 kg

DRUGS (12)
  1. REMINYL [Suspect]
     Indication: DRUG USE FOR UNKNOWN INDICATION
     Route: 048
  2. ATENOLOL [Suspect]
     Indication: DRUG USE FOR UNKNOWN INDICATION
     Route: 048
  3. ASPIRIN [Suspect]
     Indication: DRUG USE FOR UNKNOWN INDICATION
     Route: 048
  4. NEXIUM [Suspect]
     Indication: DRUG USE FOR UNKNOWN INDICATION
     Route: 048
  5. TRIATEC [Suspect]
     Indication: DRUG USE FOR UNKNOWN INDICATION
     Route: 048
  6. EQUANIL [Concomitant]
     Route: 065
  7. IMOVANE [Concomitant]
     Route: 065
  8. FORLAX [Concomitant]
     Route: 065
  9. BRICANYL [Concomitant]
     Route: 065
  10. VENTOLIN [Concomitant]
     Route: 065
  11. LASILIX [Concomitant]
     Route: 065
  12. INSULINE [Concomitant]
     Route: 065

REACTIONS (4)
  - DEHYDRATION [None]
  - INFLAMMATION [None]
  - PURPURA [None]
  - RENAL FAILURE [None]
